FAERS Safety Report 14061452 (Version 1)
Quarter: 2017Q4

REPORT INFORMATION
  Report Type: Spontaneous
  Country: US (occurrence: US)
  Receive Date: 20171009
  Receipt Date: 20171009
  Transmission Date: 20180321
  Serious: Yes (Hospitalization)
  Sender: FDA-Public Use
  Company Number: US-009507513-1710USA001468

PATIENT
  Age: 54 Year
  Sex: Female

DRUGS (4)
  1. REBETOL [Suspect]
     Active Substance: RIBAVIRIN
     Dosage: UNK, BID
     Route: 048
  2. REBETOL [Suspect]
     Active Substance: RIBAVIRIN
     Dosage: 6 TIMES IN A DAY
     Route: 048
  3. PEGINTERFERON ALFA-2A. [Suspect]
     Active Substance: PEGINTERFERON ALFA-2A
     Dosage: UNK
  4. VICTRELIS [Suspect]
     Active Substance: BOCEPREVIR
     Dosage: UNK

REACTIONS (17)
  - Blood potassium decreased [Unknown]
  - Anaemia [Unknown]
  - Swelling face [Unknown]
  - Candida infection [Unknown]
  - Weight increased [Unknown]
  - Platelet count decreased [Unknown]
  - Decreased immune responsiveness [Unknown]
  - Blood potassium decreased [Unknown]
  - Abdominal pain upper [Unknown]
  - Malaise [Unknown]
  - Headache [Unknown]
  - Peripheral swelling [Unknown]
  - White blood cell count decreased [Unknown]
  - White blood cell count decreased [Unknown]
  - Nausea [Unknown]
  - Hypertension [Unknown]
  - Vertigo [Unknown]

NARRATIVE: CASE EVENT DATE: 20130121
